FAERS Safety Report 7832204-X (Version None)
Quarter: 2011Q4

REPORT INFORMATION
  Report Type: 
  Country: None (occurrence: None)
  Receive Date: 20111022
  Receipt Date: 20100405
  Transmission Date: 20120403
  Serious: No
  Sender: FDA-Public Use
  Company Number: US-BAYER-201018926NA

PATIENT
  Age: 20 Year
  Sex: Female

DRUGS (3)
  1. FLAGYL [Concomitant]
     Dosage: UNK
     Dates: start: 20100201, end: 20100201
  2. OGESTREL 0.5/50-21 [Concomitant]
     Indication: CONTRACEPTION
     Dosage: 1 DF, QD
     Dates: start: 20091001
  3. CIPROFLOXACIN [Suspect]
     Indication: PRODUCT USED FOR UNKNOWN INDICATION
     Dosage: UNK
     Dates: start: 20100201, end: 20100201

REACTIONS (1)
  - MENSTRUATION DELAYED [None]
